FAERS Safety Report 9289419 (Version 2)
Quarter: 2014Q2

REPORT INFORMATION
  Report Type: Report from Study
  Country: JP (occurrence: JP)
  Receive Date: 20130514
  Receipt Date: 20140411
  Transmission Date: 20141212
  Serious: Yes (Hospitalization)
  Sender: FDA-Public Use
  Company Number: JP-UCBSA-085421

PATIENT
  Age: 65 Year
  Sex: Female

DRUGS (6)
  1. CIMZIA [Suspect]
     Indication: RHEUMATOID ARTHRITIS
     Route: 058
     Dates: start: 20130328, end: 20130426
  2. RHEUMATREX [Suspect]
     Indication: RHEUMATOID ARTHRITIS
     Dosage: DAILY DOSE: 2 MG
     Route: 048
     Dates: start: 20110901
  3. LOXONIN [Concomitant]
     Dosage: 120MG DAILY
     Route: 048
  4. FOLIAMIN [Concomitant]
     Route: 048
  5. MUCOSOLVAN [Concomitant]
     Dosage: 45MG DAILY
     Route: 048
  6. METHOTREXATE [Concomitant]
     Route: 048

REACTIONS (1)
  - Pneumonia [Recovered/Resolved]
